FAERS Safety Report 8515945-0 (Version None)
Quarter: 2012Q3

REPORT INFORMATION
  Report Type: 
  Country: None (occurrence: None)
  Receive Date: 20120705
  Receipt Date: 20120615
  Transmission Date: 20120928
  Serious: Yes (Hospitalization, Other)
  Sender: FDA-Public Use
  Company Number: 2012CL0043

PATIENT
  Age: 8 Year
  Sex: Male

DRUGS (1)
  1. ORFADIN [Suspect]
     Indication: TYROSINAEMIA
     Dosage: 1, 25 MG/KG (30 MG, 1 IN 1 D)
     Route: 049
     Dates: start: 20040803

REACTIONS (2)
  - LIVER TRANSPLANT [None]
  - HEPATIC NEOPLASM MALIGNANT [None]
